FAERS Safety Report 4321850-6 (Version None)
Quarter: 2004Q1

REPORT INFORMATION
  Report Type: 
  Country: None (occurrence: None)
  Receive Date: 20040322
  Receipt Date: 20040121
  Transmission Date: 20041129
  Serious: Yes (Other)
  Sender: FDA-Public Use
  Company Number: A-US2004-04362

PATIENT
  Age: 67 Year
  Sex: Female

DRUGS (10)
  1. TRACLEER [Suspect]
     Dosage: 62.5 MG ONE DOSE, ORAL
     Route: 048
     Dates: start: 20040112, end: 20040112
  2. TRACLEER [Suspect]
     Dosage: 62.5 MG ONE DOSE, ORAL
     Route: 048
     Dates: start: 20040116, end: 20040116
  3. LEVOXYL [Concomitant]
  4. LISINOPRIL [Concomitant]
  5. HYDROCHLOROTHIAZIDE [Concomitant]
  6. ALBUTEROL [Concomitant]
  7. ASPIRIN [Concomitant]
  8. ZANTAC [Concomitant]
  9. FLOVENT [Concomitant]
  10. DIURETICS [Concomitant]

REACTIONS (5)
  - DIZZINESS [None]
  - HEADACHE [None]
  - HYPOTENSION [None]
  - SYNCOPE [None]
  - THROAT TIGHTNESS [None]
